FAERS Safety Report 9451555 (Version 1)
Quarter: 2013Q3

REPORT INFORMATION
  Report Type: Spontaneous
  Country: MT (occurrence: MT)
  Receive Date: 20130811
  Receipt Date: 20130811
  Transmission Date: 20140515
  Serious: Yes (Hospitalization)
  Sender: FDA-Public Use
  Company Number: MT-MYLANLABS-2013S1017076

PATIENT
  Age: 57 Year
  Sex: Male

DRUGS (4)
  1. WARFARIN [Suspect]
     Indication: ACCIDENTAL OVERDOSE
     Dosage: 15MG DAILY FOR 3D
     Route: 048
  2. WARFARIN [Suspect]
     Indication: ACCIDENTAL OVERDOSE
     Route: 065
  3. RIBAVIRIN [Concomitant]
     Indication: HEPATITIS C
     Route: 065
  4. INTERFERON ALFA [Concomitant]
     Indication: HEPATITIS C
     Route: 065

REACTIONS (9)
  - Intestinal haematoma [Recovered/Resolved]
  - Accidental overdose [Recovered/Resolved]
  - Small intestinal obstruction [Recovered/Resolved]
  - Epistaxis [Recovered/Resolved]
  - Lip haematoma [Recovered/Resolved]
  - Gingival bleeding [Recovered/Resolved]
  - Contusion [Recovered/Resolved]
  - Rectal haemorrhage [Recovered/Resolved]
  - Coagulopathy [Recovered/Resolved]
